FAERS Safety Report 6774051-6 (Version None)
Quarter: 2010Q2

REPORT INFORMATION
  Report Type: 
  Country: None (occurrence: None)
  Receive Date: 20100617
  Receipt Date: 20100604
  Transmission Date: 20101027
  Serious: Yes (Other)
  Sender: FDA-Public Use
  Company Number: PHHY2010CA37074

PATIENT
  Sex: Female

DRUGS (1)
  1. ACLASTA [Suspect]
     Indication: OSTEOPOROSIS
     Dosage: UNK
     Dates: start: 20100502

REACTIONS (6)
  - APHONIA [None]
  - ASTHENIA [None]
  - MIGRAINE [None]
  - MUSCULOSKELETAL STIFFNESS [None]
  - PAIN [None]
  - WEIGHT BEARING DIFFICULTY [None]
